FAERS Safety Report 4611078-4 (Version None)
Quarter: 2005Q1

REPORT INFORMATION
  Report Type: 
  Country: None (occurrence: None)
  Receive Date: 20050316
  Receipt Date: 20050316
  Transmission Date: 20050727
  Serious: No
  Sender: FDA-Public Use
  Company Number: None

PATIENT
  Age: 73 Year
  Sex: Male
  Weight: 73.9 kg

DRUGS (8)
  1. OPTIRAY 320 [Suspect]
  2. ARTIFICIAL TEARS POLYVINYL ALCOHOL [Concomitant]
  3. SILDENAFIL CITRATE [Concomitant]
  4. FINASTERIDE [Concomitant]
  5. TERAZOSIN HCL [Concomitant]
  6. MOISTURIZING LOTION [Concomitant]
  7. ALBUTEROL SULFATE AND IPRATROPIUM BROMIDE [Concomitant]
  8. AMLODIPINE BESYLATE [Concomitant]

REACTIONS (10)
  - ANXIETY [None]
  - CONFUSIONAL STATE [None]
  - DYSPNOEA [None]
  - EYE SWELLING [None]
  - LACRIMATION INCREASED [None]
  - NAUSEA [None]
  - PRURITUS [None]
  - TACHYCARDIA [None]
  - URTICARIA [None]
  - VOMITING [None]
